FAERS Safety Report 7965705-4 (Version None)
Quarter: 2011Q4

REPORT INFORMATION
  Report Type: 
  Country: None (occurrence: None)
  Receive Date: 20111208
  Receipt Date: 20111125
  Transmission Date: 20120403
  Serious: Yes (Other)
  Sender: FDA-Public Use
  Company Number: US-WATSON-2011-19907

PATIENT
  Age: 24 Year
  Sex: Female

DRUGS (2)
  1. PREDNISOLONE [Suspect]
     Indication: SYSTEMIC LUPUS ERYTHEMATOSUS
     Dosage: 30 - 60 MG, DAILY
     Route: 065
  2. CYCLOPHOSPHAMIDE [Suspect]
     Indication: SYSTEMIC LUPUS ERYTHEMATOSUS
     Dosage: UNKNOWN
     Route: 065

REACTIONS (4)
  - EYE INFECTION BACTERIAL [None]
  - SUBCUTANEOUS ABSCESS [None]
  - PNEUMONITIS [None]
  - NOCARDIA TEST POSITIVE [None]
